FAERS Safety Report 18367141 (Version 1)
Quarter: 2020Q4

REPORT INFORMATION
  Report Type: Spontaneous
  Country: US (occurrence: US)
  Receive Date: 20201009
  Receipt Date: 20201009
  Transmission Date: 20210114
  Serious: Yes (Other)
  Sender: FDA-Public Use
  Company Number: US-TEVA-2020-US-1836713

PATIENT
  Sex: Male

DRUGS (12)
  1. HYDROMORPHONE ORAL SOLUTION [Suspect]
     Active Substance: HYDROMORPHONE
     Route: 065
  2. TRAMADOL. [Suspect]
     Active Substance: TRAMADOL
     Dosage: FORM OF ADMIN: EXTENDED RELEASE TABLETS
     Route: 065
  3. DILAUDID [Suspect]
     Active Substance: HYDROMORPHONE HYDROCHLORIDE
     Route: 065
  4. MORPHINE [Suspect]
     Active Substance: MORPHINE
     Dosage: FORM OF ADMIN: EXTENDED RELEASE TABLETS
     Route: 065
  5. OXYCONTIN [Suspect]
     Active Substance: OXYCODONE HYDROCHLORIDE
     Route: 065
  6. MS CONTIN [Suspect]
     Active Substance: MORPHINE SULFATE
     Route: 065
  7. HYDROMORPHONE IMMEDIATE-RELEASE TABLETS [Suspect]
     Active Substance: HYDROMORPHONE
     Dosage: FORM OF ADMIN: IMMEDIATE RELEASE TABLET
     Route: 065
  8. OXYCODONE IMMEDIATE RELEASE TABLETS [Suspect]
     Active Substance: OXYCODONE HYDROCHLORIDE
     Dosage: FORM OF ADMIN: IMMEDIATE RELEASE TABLETS
     Route: 065
  9. HYDROCODONE AND ACETAMINOPHEN [Suspect]
     Active Substance: ACETAMINOPHEN\HYDROCODONE
     Route: 065
  10. ACETAMINOPHEN W/OXYCODONE [Suspect]
     Active Substance: ACETAMINOPHEN\OXYCODONE HYDROCHLORIDE
     Route: 065
  11. OXY IR [Suspect]
     Active Substance: OXYCODONE HYDROCHLORIDE
     Route: 065
  12. OXYCODONE EXTENDED RELEASE TABLETS [Suspect]
     Active Substance: OXYCODONE
     Dosage: FORM OF ADMIN: EXTENDED RELEASE TABLETS
     Route: 065

REACTIONS (4)
  - Dependence [Unknown]
  - Substance use disorder [Unknown]
  - Loss of employment [Unknown]
  - Overdose [Unknown]
